FAERS Safety Report 17858382 (Version 2)
Quarter: 2020Q2

REPORT INFORMATION
  Report Type: Report from Study
  Country: None (occurrence: US)
  Receive Date: 20200604
  Receipt Date: 20200605
  Transmission Date: 20200714
  Serious: No
  Sender: FDA-Public Use
  Company Number: US-US WORLDMEDS, LLC-USW201907-001395

PATIENT
  Age: 91 Year
  Sex: Female
  Weight: 41.73 kg

DRUGS (3)
  1. APOKYN [Suspect]
     Active Substance: APOMORPHINE HYDROCHLORIDE
     Indication: PARKINSON^S DISEASE
     Dosage: 0.2 ML UNDER THE SKIN AS STARTER DOSE
  2. APOKYN [Suspect]
     Active Substance: APOMORPHINE HYDROCHLORIDE
     Dosage: 30MG/3ML
     Route: 058
     Dates: start: 20190618, end: 20190730
  3. APOKYN [Suspect]
     Active Substance: APOMORPHINE HYDROCHLORIDE

REACTIONS (5)
  - Dizziness [Recovered/Resolved]
  - Vomiting [Recovered/Resolved]
  - Malaise [Recovered/Resolved]
  - Cold sweat [Recovered/Resolved]
  - Nausea [Recovered/Resolved]

NARRATIVE: CASE EVENT DATE: 20190724
